FAERS Safety Report 18373254 (Version 2)
Quarter: 2020Q4

REPORT INFORMATION
  Report Type: Spontaneous
  Country: JP (occurrence: JP)
  Receive Date: 20201012
  Receipt Date: 20201028
  Transmission Date: 20210114
  Serious: Yes (Other)
  Sender: FDA-Public Use
  Company Number: JP-SHIONOGI, INC-2020000499

PATIENT
  Age: 74 Year
  Sex: Male
  Weight: 67.9 kg

DRUGS (2)
  1. MULPLETA [Suspect]
     Active Substance: LUSUTROMBOPAG
     Indication: THROMBOCYTOPENIA
  2. MULPLETA [Suspect]
     Active Substance: LUSUTROMBOPAG
     Indication: PROPHYLAXIS
     Dosage: 3 MG, QD
     Route: 048
     Dates: start: 20200920, end: 20200926

REACTIONS (1)
  - Pulmonary embolism [Recovered/Resolved]

NARRATIVE: CASE EVENT DATE: 20200924
